FAERS Safety Report 6211866-7 (Version None)
Quarter: 2009Q2

REPORT INFORMATION
  Report Type: 
  Country: None (occurrence: None)
  Receive Date: 20090528
  Receipt Date: 20090513
  Transmission Date: 20091009
  Serious: Yes (Hospitalization)
  Sender: FDA-Public Use
  Company Number: 2009205953

PATIENT
  Age: 62 Year
  Sex: Female

DRUGS (2)
  1. DALTEPARIN SODIUM [Suspect]
     Indication: LUNG NEOPLASM MALIGNANT
     Dates: start: 20090422
  2. GEMCITABINE [Suspect]
     Dosage: INTRAVENOUS
     Route: 042
     Dates: start: 20090422, end: 20090429

REACTIONS (1)
  - ANAPHYLACTIC REACTION [None]
